FAERS Safety Report 6403258-2 (Version None)
Quarter: 2009Q4

REPORT INFORMATION
  Report Type: 
  Country: None (occurrence: None)
  Receive Date: 20091016
  Receipt Date: 20091006
  Transmission Date: 20100525
  Serious: Yes (Other)
  Sender: FDA-Public Use
  Company Number: US-PFIZER INC-2009261017

PATIENT
  Age: 84 Year

DRUGS (4)
  1. NORVASC [Suspect]
     Indication: HYPERTENSION
     Dosage: 5 MG, 1X/DAY
     Dates: start: 20080806
  2. THYROID TAB [Concomitant]
     Indication: HYPOTHYROIDISM
  3. PREVACID [Concomitant]
     Indication: INFLAMMATION
  4. TOPROL-XL [Concomitant]

REACTIONS (5)
  - CONSTIPATION [None]
  - FEELING HOT [None]
  - JOINT SWELLING [None]
  - PAIN [None]
  - SYSTEMIC LUPUS ERYTHEMATOSUS [None]
